FAERS Safety Report 18912500 (Version 3)
Quarter: 2021Q1

REPORT INFORMATION
  Report Type: Spontaneous
  Country: BR (occurrence: BR)
  Receive Date: 20210218
  Receipt Date: 20210326
  Transmission Date: 20210420
  Serious: Yes (Hospitalization, Other)
  Sender: FDA-Public Use
  Company Number: BR-SA-2021SA051385

PATIENT
  Age: 76 Year
  Sex: Female
  Weight: 66.9 kg

DRUGS (9)
  1. LANTUS [Suspect]
     Active Substance: INSULIN GLARGINE
     Indication: TYPE 2 DIABETES MELLITUS
     Dosage: 40 IU, QD
     Route: 058
     Dates: start: 2016
  2. DIPROSPAN [BETAMETHASONE DIPROPIONATE] [Concomitant]
     Active Substance: BETAMETHASONE DIPROPIONATE
     Indication: PAIN IN EXTREMITY
     Dosage: 5 MG, QM
     Route: 030
     Dates: start: 20201203
  3. BETALOR [Concomitant]
     Active Substance: AMLODIPINE BESYLATE\ATENOLOL
     Indication: CARDIAC DISORDER
     Dosage: 25 MG, QD (1 TABLET IN THE MORNING)
     Route: 048
     Dates: start: 2016
  4. BENICAR [Concomitant]
     Active Substance: OLMESARTAN MEDOXOMIL
     Indication: CARDIAC DISORDER
     Dosage: 1 DF, QD (1 TABLET IN THE MORNING)
     Route: 048
     Dates: start: 2016
  5. NUTREN SENIOR [Concomitant]
     Indication: NUTRITIONAL SUPPLEMENTATION
     Dosage: 3 DF
     Route: 048
     Dates: start: 202012
  6. COMBIRON [Concomitant]
     Active Substance: ASCORBIC ACID\FERROUS SULFATE\FOLIC ACID\PYRIDOXINE HYDROCHLORIDE\RIBOFLAVIN\THIAMINE MONONITRATE
     Indication: ANAEMIA
     Dosage: 120 MG, QD(1 TABLET AFTER DINNER)
     Route: 048
     Dates: start: 202010
  7. DIPROSPAN [BETAMETHASONE DIPROPIONATE] [Concomitant]
     Active Substance: BETAMETHASONE DIPROPIONATE
     Indication: CARDIOVASCULAR INSUFFICIENCY
  8. PURAVIT A/D/E [Concomitant]
     Indication: MUSCLE STRENGTH ABNORMAL
     Dosage: 1 DF, BID (1 TABLET IN THE MORNING AND 1 TABLET AT NIGHT)
     Route: 048
     Dates: start: 202012
  9. TRAYENTA [Concomitant]
     Active Substance: LINAGLIPTIN
     Indication: TYPE 2 DIABETES MELLITUS
     Dosage: 5 MG, QD (1 TABLET IN THE MORNING)
     Route: 048
     Dates: start: 2016

REACTIONS (10)
  - Agitation [Recovered/Resolved]
  - Needle issue [Unknown]
  - Pneumonia [Recovered/Resolved]
  - Injury associated with device [Unknown]
  - Delirium [Recovered/Resolved]
  - Headache [Recovered/Resolved]
  - Blindness [Recovered/Resolved]
  - Cerebrovascular accident [Recovered/Resolved]
  - Diabetes mellitus inadequate control [Recovered/Resolved]
  - Device issue [Unknown]

NARRATIVE: CASE EVENT DATE: 20201001
